FAERS Safety Report 18778822 (Version 5)
Quarter: 2022Q2

REPORT INFORMATION
  Report Type: Spontaneous
  Country: US (occurrence: US)
  Receive Date: 20210124
  Receipt Date: 20220520
  Transmission Date: 20220720
  Serious: No
  Sender: FDA-Public Use
  Company Number: US-SANOFI-00431771

PATIENT
  Age: 48 Year
  Sex: Male

DRUGS (2)
  1. LANTUS [Suspect]
     Active Substance: INSULIN GLARGINE
     Indication: Type 1 diabetes mellitus
     Dosage: 30 IU, HS
     Route: 065
     Dates: start: 1992
  2. LANTUS [Suspect]
     Active Substance: INSULIN GLARGINE
     Dosage: 20 IU, HS
     Route: 065

REACTIONS (4)
  - Sleep disorder [Unknown]
  - Blood glucose decreased [Recovered/Resolved]
  - Blood glucose fluctuation [Recovering/Resolving]
  - Product quality issue [Recovering/Resolving]
